FAERS Safety Report 4943040-6 (Version None)
Quarter: 2006Q1

REPORT INFORMATION
  Report Type: 
  Country: None (occurrence: None)
  Receive Date: 20060314
  Receipt Date: 20060310
  Transmission Date: 20060701
  Serious: Yes (Life-Threatening)
  Sender: FDA-Public Use
  Company Number: FR-GLAXOSMITHKLINE-B0415332A

PATIENT
  Age: 45 Year
  Sex: Female

DRUGS (1)
  1. CLAMOXYL [Suspect]
     Indication: DENTAL CARE
     Route: 048
     Dates: start: 20051101

REACTIONS (5)
  - ANAPHYLACTIC SHOCK [None]
  - BLOOD PRESSURE SYSTOLIC ABNORMAL [None]
  - ERYTHEMA [None]
  - MALAISE [None]
  - PRURITUS [None]
